FAERS Safety Report 5924254-5 (Version None)
Quarter: 2008Q4

REPORT INFORMATION
  Report Type: 
  Country: None (occurrence: None)
  Receive Date: 20081015
  Receipt Date: 20080917
  Transmission Date: 20090506
  Serious: Yes (Hospitalization)
  Sender: FDA-Public Use
  Company Number: 99932

PATIENT
  Age: 56 Year
  Sex: Female

DRUGS (6)
  1. NAPROXEN [Suspect]
     Indication: PAIN
     Dosage: ORAL
     Route: 048
     Dates: start: 20080828, end: 20080829
  2. BENDROFLUMETHIAZIDE 2.5 MG [Concomitant]
  3. OMEPRAZOLE [Concomitant]
  4. PARACETAMOL 1G [Concomitant]
  5. RAMIPRIL [Concomitant]
  6. SIMVASTATIN [Concomitant]

REACTIONS (3)
  - CHEST DISCOMFORT [None]
  - LIP SWELLING [None]
  - SWELLING FACE [None]
